FAERS Safety Report 9977726 (Version 2)
Quarter: 2014Q1

REPORT INFORMATION
  Report Type: Report from Study
  Country: US (occurrence: US)
  Receive Date: 20140306
  Receipt Date: 20140306
  Transmission Date: 20141002
  Serious: Yes (Hospitalization)
  Sender: FDA-Public Use
  Company Number: US-ABBVIE-13P-163-1156424-00

PATIENT
  Age: 44 Year
  Sex: Female

DRUGS (15)
  1. HUMIRA [Suspect]
     Indication: CROHN^S DISEASE
     Route: 058
     Dates: start: 20130911, end: 20130911
  2. HUMIRA [Suspect]
     Route: 058
     Dates: start: 20130925, end: 20130925
  3. HUMIRA [Suspect]
     Route: 058
  4. HUMIRA [Suspect]
     Dosage: MONDAY AND WEDNESDAY
  5. HUMIRA [Suspect]
  6. PENTASA [Concomitant]
     Indication: PRODUCT USED FOR UNKNOWN INDICATION
  7. ENTOCORT [Concomitant]
     Indication: PRODUCT USED FOR UNKNOWN INDICATION
     Dosage: 3 PILLS A DAY
  8. SOLUMEDROL [Concomitant]
     Indication: PRODUCT USED FOR UNKNOWN INDICATION
     Dates: start: 20131003, end: 20131003
  9. ACETAMINOPHEN [Concomitant]
     Indication: ABDOMINAL PAIN
  10. HYDROCODONE [Concomitant]
     Indication: PRODUCT USED FOR UNKNOWN INDICATION
     Dosage: 1 PILL EVERY FOUR HOURS
  11. BENTYL [Concomitant]
     Indication: PRODUCT USED FOR UNKNOWN INDICATION
  12. BYSTOLIC [Concomitant]
     Indication: BLOOD PRESSURE INCREASED
  13. ELAVIL [Concomitant]
     Indication: INSOMNIA
     Dosage: AT BEDTIME
  14. WELLBUTRIN [Concomitant]
     Indication: BIPOLAR DISORDER
     Dosage: GENERIC
  15. DEPAKOTE [Concomitant]
     Indication: BIPOLAR DISORDER

REACTIONS (12)
  - Crohn^s disease [Not Recovered/Not Resolved]
  - Crohn^s disease [Unknown]
  - Dysuria [Unknown]
  - Dysuria [Unknown]
  - White blood cells urine [Unknown]
  - Blood urine [Unknown]
  - Fatigue [Not Recovered/Not Resolved]
  - Pain [Not Recovered/Not Resolved]
  - Pruritus generalised [Not Recovered/Not Resolved]
  - Nausea [Not Recovered/Not Resolved]
  - Dizziness [Not Recovered/Not Resolved]
  - Dermatitis acneiform [Not Recovered/Not Resolved]
